FAERS Safety Report 8433529-X (Version None)
Quarter: 2012Q2

REPORT INFORMATION
  Report Type: 
  Country: None (occurrence: None)
  Receive Date: 20120323
  Receipt Date: 20111215
  Transmission Date: 20120825
  Serious: Yes (Hospitalization, Other)
  Sender: FDA-Public Use
  Company Number: 163-21880-11071430

PATIENT
  Age: 85 Year
  Sex: Female

DRUGS (22)
  1. ATORVASTATIN CALCIUM [Concomitant]
  2. VITAMIN B12 [Concomitant]
  3. MORPHINE [Concomitant]
  4. ATENOLOL [Concomitant]
  5. SENNA-MINT WAF [Concomitant]
  6. DEXAMETHASONE [Concomitant]
  7. LEVOTROID (LEVOTHYROXINE SODIUM) [Concomitant]
  8. CALCIUM CARBONATE [Concomitant]
  9. FLORESTOR (SACCHAROMYCES BOULARDIL LYOPHYLIZED) [Concomitant]
  10. PANTOPRAZOLE [Concomitant]
  11. REVLIMID [Suspect]
     Indication: MULTIPLE MYELOMA
     Dosage: 15 MG, 3 IN 1 D, PO; 5 MG, Q.H.S, PO
     Route: 048
     Dates: start: 20090116
  12. REVLIMID [Suspect]
     Indication: MULTIPLE MYELOMA
     Dosage: 15 MG, 3 IN 1 D, PO; 5 MG, Q.H.S, PO
     Route: 048
     Dates: start: 20090401
  13. CENTRUM [Concomitant]
  14. LIPITOR [Concomitant]
  15. ASPIRIN [Concomitant]
  16. VITAMIN D [Concomitant]
  17. AMBIEN [Concomitant]
  18. CIPRO [Concomitant]
  19. SYNTHROID [Concomitant]
  20. MIRALAX [Concomitant]
  21. LEVAQUIN [Concomitant]
  22. VICODIN [Concomitant]

REACTIONS (3)
  - FEMORAL NECK FRACTURE [None]
  - FALL [None]
  - DEEP VEIN THROMBOSIS [None]
